FAERS Safety Report 7218441-6 (Version None)
Quarter: 2011Q1

REPORT INFORMATION
  Report Type: 
  Country: None (occurrence: None)
  Receive Date: 20110110
  Receipt Date: 20110107
  Transmission Date: 20110831
  Serious: Yes (Hospitalization, Other)
  Sender: FDA-Public Use
  Company Number: JP-ABBOTT-10P-087-0641092-00

PATIENT
  Sex: Male
  Weight: 45 kg

DRUGS (7)
  1. LEVOMEPROMAZINE [Concomitant]
     Indication: INSOMNIA
     Dosage: EVENING AND BEDTIME, DAILY DOSE 0.8 GRAM
     Route: 048
     Dates: start: 20100404, end: 20100428
  2. ALPRAZOLAM [Concomitant]
     Indication: INSOMNIA
     Route: 048
     Dates: start: 20100404, end: 20100428
  3. LEVODOPA/CARBIDOPA HYDRATE [Concomitant]
     Indication: PRODUCT USED FOR UNKNOWN INDICATION
     Route: 048
     Dates: start: 20100404, end: 20100428
  4. PREDNISOLONE [Concomitant]
     Indication: RHEUMATOID ARTHRITIS
     Route: 048
     Dates: start: 20100204, end: 20100428
  5. HUMIRA [Suspect]
     Indication: RHEUMATOID ARTHRITIS
     Route: 058
     Dates: start: 20100118, end: 20100413
  6. SENNA LEAF/SENNA POD [Concomitant]
     Indication: CONSTIPATION
     Route: 048
     Dates: start: 20100404, end: 20100428
  7. DICLOFENAC SODIUM [Concomitant]
     Indication: RHEUMATOID ARTHRITIS
     Route: 054
     Dates: start: 20100214, end: 20100414

REACTIONS (9)
  - GENERAL PHYSICAL HEALTH DETERIORATION [None]
  - DYSPHAGIA [None]
  - CACHEXIA [None]
  - INSOMNIA [None]
  - BLOOD URIC ACID INCREASED [None]
  - PULMONARY OEDEMA [None]
  - HYPOPHAGIA [None]
  - DYSPNOEA [None]
  - PRURITUS [None]
